FAERS Safety Report 5890761-7 (Version None)
Quarter: 2008Q3

REPORT INFORMATION
  Report Type: 
  Country: None (occurrence: None)
  Receive Date: 20080922
  Receipt Date: 20080915
  Transmission Date: 20090109
  Serious: Yes (Other)
  Sender: FDA-Public Use
  Company Number: US-BAYER-200812669BCC

PATIENT
  Age: 55 Year
  Sex: Male
  Weight: 113 kg

DRUGS (3)
  1. ASPIRIN [Suspect]
     Indication: ISCHAEMIC HEART DISEASE PROPHYLAXIS
     Dosage: TOTAL DAILY DOSE: 325 MG  UNIT DOSE: 325 MG
     Route: 048
     Dates: start: 20000101, end: 20070101
  2. TEROPHOSPHATE [Concomitant]
  3. ASCORBIC ACID [Concomitant]

REACTIONS (3)
  - FATIGUE [None]
  - HAEMATOCHEZIA [None]
  - RECTAL HAEMORRHAGE [None]
